FAERS Safety Report 8474310-5 (Version None)
Quarter: 2012Q2

REPORT INFORMATION
  Report Type: 
  Country: None (occurrence: None)
  Receive Date: 20120628
  Receipt Date: 20120621
  Transmission Date: 20120825
  Serious: Yes (Hospitalization)
  Sender: FDA-Public Use
  Company Number: FR-B.I. PHARMACEUTICALS,INC./RIDGEFIELD-2012-FF-00634FF

PATIENT
  Age: 63 Year
  Sex: Male

DRUGS (6)
  1. PRADAXA [Suspect]
     Indication: ATRIAL FIBRILLATION
     Dosage: 150 MG
     Route: 048
     Dates: start: 20120511, end: 20120511
  2. SIMVASTATIN [Concomitant]
     Indication: DYSLIPIDAEMIA
  3. BISOPROLOL FUMARATE [Concomitant]
     Dosage: 5 MG
     Route: 048
     Dates: start: 20120501
  4. BISOPROLOL FUMARATE [Concomitant]
     Dosage: 10 MG
     Route: 048
     Dates: start: 20110101, end: 20120501
  5. IPERTEN [Concomitant]
     Indication: HYPERTENSION
  6. PRADAXA [Suspect]
     Dosage: 300 MG
     Route: 048
     Dates: start: 20120512, end: 20120517

REACTIONS (1)
  - ISCHAEMIC STROKE [None]
